FAERS Safety Report 7049967-6 (Version None)
Quarter: 2010Q4

REPORT INFORMATION
  Report Type: 
  Country: None (occurrence: None)
  Receive Date: 20101018
  Receipt Date: 20101006
  Transmission Date: 20110411
  Serious: Yes (Hospitalization, Other)
  Sender: FDA-Public Use
  Company Number: PHHY2010JP66652

PATIENT
  Age: 74 Year
  Sex: Female

DRUGS (2)
  1. VOLTAREN [Suspect]
     Dosage: UNK
     Route: 048
  2. LANSOPRAZOLE [Suspect]
     Dosage: UNK
     Route: 048

REACTIONS (4)
  - COLITIS COLLAGENOUS [None]
  - GASTRIC CANCER [None]
  - GASTRIC ULCER [None]
  - GASTROINTESTINAL ENDOSCOPIC THERAPY [None]
